FAERS Safety Report 26087169 (Version 1)
Quarter: 2025Q4

REPORT INFORMATION
  Report Type: Spontaneous
  Country: US (occurrence: US)
  Receive Date: 20251125
  Receipt Date: 20251125
  Transmission Date: 20260119
  Serious: Yes (Death)
  Sender: MYLAN
  Company Number: US-MYLANLABS-2025M1099585

PATIENT
  Age: 24 Year
  Sex: Female

DRUGS (3)
  1. ACETAMINOPHEN [Suspect]
     Active Substance: ACETAMINOPHEN
     Indication: Product used for unknown indication
     Dosage: UNK
  2. FOMEPIZOLE [Suspect]
     Active Substance: FOMEPIZOLE
     Indication: Overdose
     Dosage: UNK, THREE STANDARD DOSES GIVEN OVER TWO DAYS
  3. ACETYLCYSTEINE [Suspect]
     Active Substance: ACETYLCYSTEINE
     Indication: Overdose
     Dosage: UNK (DOUBLE DOSE AT 18 HOURS)

REACTIONS (5)
  - Overdose [Fatal]
  - Toxicity to various agents [Fatal]
  - Drug-induced liver injury [Fatal]
  - Encephalopathy [Fatal]
  - Drug ineffective [Fatal]
